FAERS Safety Report 24861701 (Version 1)
Quarter: 2025Q1

REPORT INFORMATION
  Report Type: Spontaneous
  Country: US (occurrence: US)
  Receive Date: 20250120
  Receipt Date: 20250120
  Transmission Date: 20250409
  Serious: Yes (Other)
  Sender: MICRO LABS
  Company Number: US-862174955-ML2025-00168

PATIENT
  Age: 45 Year
  Sex: Female

DRUGS (1)
  1. TOFACITINIB [Suspect]
     Active Substance: TOFACITINIB
     Indication: Colitis ulcerative

REACTIONS (1)
  - Autoimmune haemolytic anaemia [Recovered/Resolved]
